FAERS Safety Report 12294368 (Version 1)
Quarter: 2016Q2

REPORT INFORMATION
  Report Type: Report from Study
  Country: CA (occurrence: CA)
  Receive Date: 20160422
  Receipt Date: 20160422
  Transmission Date: 20160815
  Serious: Yes (Other)
  Sender: FDA-Public Use
  Company Number: CA-AMGEN-CANSL2014100829

PATIENT
  Age: 58 Year
  Sex: Male

DRUGS (3)
  1. PLAQUENIL                          /00072602/ [Concomitant]
     Active Substance: HYDROXYCHLOROQUINE DIPHOSPHATE
     Dosage: UNK
  2. ENBREL [Suspect]
     Active Substance: ETANERCEPT
     Indication: PSORIATIC ARTHROPATHY
     Dosage: 50 MG, UNK
     Route: 065
     Dates: start: 20130228
  3. CELEBREX [Concomitant]
     Active Substance: CELECOXIB
     Dosage: UNK

REACTIONS (5)
  - Joint destruction [Recovering/Resolving]
  - Mobility decreased [Recovering/Resolving]
  - Pain [Recovering/Resolving]
  - Pneumonia [Recovering/Resolving]
  - Prostatomegaly [Recovering/Resolving]

NARRATIVE: CASE EVENT DATE: 20141212
